FAERS Safety Report 8939214 (Version 1)
Quarter: 2012Q4

REPORT INFORMATION
  Report Type: 
  Country: DK (occurrence: DK)
  Receive Date: 20121203
  Receipt Date: 20121203
  Transmission Date: 20130627
  Serious: Yes (Hospitalization, Other)
  Sender: FDA-Public Use
  Company Number: DK-ASTRAZENECA-2012SE89298

PATIENT
  Age: 55 Year
  Sex: Male

DRUGS (3)
  1. SEROQUEL IR [Suspect]
     Indication: SCHIZOPHRENIA
     Route: 048
  2. CITALOPRAM [Concomitant]
  3. POTASSIUM [Concomitant]

REACTIONS (2)
  - Electrocardiogram QT prolonged [Unknown]
  - Drug withdrawal syndrome [Unknown]
